FAERS Safety Report 7012761-6 (Version None)
Quarter: 2010Q3

REPORT INFORMATION
  Report Type: 
  Country: None (occurrence: None)
  Receive Date: 20100924
  Receipt Date: 20100917
  Transmission Date: 20110219
  Serious: Yes (Other)
  Sender: FDA-Public Use
  Company Number: A0872127A

PATIENT
  Age: 60 Year
  Sex: Female
  Weight: 159.1 kg

DRUGS (6)
  1. LAMICTAL [Suspect]
     Indication: MAJOR DEPRESSION
     Dosage: 25MG PER DAY
     Route: 048
     Dates: start: 20100603, end: 20100715
  2. WELLBUTRIN [Concomitant]
  3. GLIPIZIDE [Concomitant]
  4. METFORMIN [Concomitant]
  5. AVANDIA [Concomitant]
  6. UNKNOWN DRUG [Concomitant]

REACTIONS (10)
  - ANXIETY [None]
  - BALANCE DISORDER [None]
  - DIARRHOEA [None]
  - DISTURBANCE IN ATTENTION [None]
  - DIZZINESS [None]
  - IRRITABILITY [None]
  - MENTAL IMPAIRMENT [None]
  - MOOD ALTERED [None]
  - NERVOUSNESS [None]
  - PALPITATIONS [None]
